FAERS Safety Report 6404450-3 (Version None)
Quarter: 2009Q4

REPORT INFORMATION
  Report Type: 
  Country: None (occurrence: None)
  Receive Date: 20091016
  Receipt Date: 20090901
  Transmission Date: 20100525
  Serious: No
  Sender: FDA-Public Use
  Company Number: US-ALEXION-A200900709

PATIENT
  Sex: Female

DRUGS (3)
  1. SOLIRIS [Suspect]
     Indication: PAROXYSMAL NOCTURNAL HAEMOGLOBINURIA
     Dosage: Q14D
  2. VITAMIN B-12 [Concomitant]
  3. EXJADE [Concomitant]

REACTIONS (8)
  - AMENORRHOEA [None]
  - BLOOD IRON INCREASED [None]
  - HAEMOGLOBIN DECREASED [None]
  - HYPERSENSITIVITY [None]
  - LOWER RESPIRATORY TRACT INFECTION [None]
  - MALAISE [None]
  - MENORRHAGIA [None]
  - PLATELET COUNT DECREASED [None]
